FAERS Safety Report 5257815-X (Version None)
Quarter: 2007Q1

REPORT INFORMATION
  Report Type: 
  Country: None (occurrence: None)
  Receive Date: 20070307
  Receipt Date: 20070223
  Transmission Date: 20070707
  Serious: Yes (Other)
  Sender: FDA-Public Use
  Company Number: US-PFIZER INC-2007015324

PATIENT
  Sex: Female
  Weight: 60.3 kg

DRUGS (3)
  1. LYRICA [Suspect]
     Indication: NEUROPATHY PERIPHERAL
  2. AMITRIPTYLINE HCL [Concomitant]
  3. ASPIRIN [Concomitant]

REACTIONS (3)
  - ABASIA [None]
  - CATARACT [None]
  - GASTROINTESTINAL INFECTION [None]
